FAERS Safety Report 15783462 (Version 1)
Quarter: 2019Q1

REPORT INFORMATION
  Report Type: Report from Study
  Country: ES (occurrence: ES)
  Receive Date: 20190102
  Receipt Date: 20190102
  Transmission Date: 20190417
  Serious: Yes (Death, Hospitalization)
  Sender: FDA-Public Use
  Company Number: ES-MYLANLABS-2018M1096927

PATIENT
  Age: 74 Year
  Sex: Male

DRUGS (5)
  1. TORASEMIDA [Concomitant]
     Active Substance: TORSEMIDE
     Indication: LEFT VENTRICULAR DYSFUNCTION
     Dosage: 2.5 MILLIGRAM, QD (1/2-0-0)
     Route: 048
     Dates: start: 20170208, end: 20170520
  2. SINTROM [Concomitant]
     Active Substance: ACENOCOUMAROL
     Indication: ATRIAL FIBRILLATION
     Dosage: UNK (SP)
     Route: 048
     Dates: start: 20170113
  3. ALDACTONE [Concomitant]
     Active Substance: SPIRONOLACTONE
     Indication: LEFT VENTRICULAR DYSFUNCTION
     Dosage: 25 MILLIGRAM, QD (25 MG 1-0-0)
     Route: 048
     Dates: start: 20170208, end: 20170519
  4. ATENOLOL. [Suspect]
     Active Substance: ATENOLOL
     Indication: ATRIAL FIBRILLATION
     Dosage: 50 MILLIGRAM, QD (50 MG 1-0-0)
     Route: 048
     Dates: start: 20170113, end: 20170519
  5. ENALAPRIL [Concomitant]
     Active Substance: ENALAPRIL
     Indication: HYPERTENSION
     Dosage: 20 MILLIGRAM, QD (1-0-0)
     Route: 048
     Dates: start: 20070316, end: 20170519

REACTIONS (2)
  - Cardiogenic shock [Fatal]
  - Atrioventricular block complete [Fatal]

NARRATIVE: CASE EVENT DATE: 20170519
